FAERS Safety Report 5941216-2 (Version None)
Quarter: 2008Q4

REPORT INFORMATION
  Report Type: 
  Country: None (occurrence: None)
  Receive Date: 20081104
  Receipt Date: 20081030
  Transmission Date: 20090506
  Serious: Yes (Death, Hospitalization)
  Sender: FDA-Public Use
  Company Number: US-GILEAD-2008-0018787

PATIENT
  Sex: Male
  Weight: 78.088 kg

DRUGS (2)
  1. TRUVADA [Suspect]
     Indication: ACQUIRED IMMUNODEFICIENCY SYNDROME
     Route: 048
  2. EFAVIRENZ [Concomitant]
     Route: 048

REACTIONS (1)
  - DEATH [None]
